FAERS Safety Report 6244111-7 (Version None)
Quarter: 2009Q2

REPORT INFORMATION
  Report Type: 
  Country: None (occurrence: None)
  Receive Date: 20090623
  Receipt Date: 20090623
  Transmission Date: 20091009
  Serious: Yes (Hospitalization)
  Sender: FDA-Public Use
  Company Number: None

PATIENT
  Age: 88 Year
  Sex: Male
  Weight: 62.1 kg

DRUGS (2)
  1. ASPIRIN [Suspect]
     Indication: TRANSIENT ISCHAEMIC ATTACK
     Dosage: 81 MG EVERY DAY PO
     Route: 048
     Dates: start: 19961029, end: 20071023
  2. CLOPIDOGREL [Suspect]
     Indication: TRANSIENT ISCHAEMIC ATTACK
     Dosage: 75 MG EVERY DAY PO
     Route: 048
     Dates: start: 20041230

REACTIONS (2)
  - GASTROINTESTINAL HAEMORRHAGE [None]
  - TRANSIENT ISCHAEMIC ATTACK [None]
